FAERS Safety Report 7963888-3 (Version None)
Quarter: 2011Q4

REPORT INFORMATION
  Report Type: 
  Country: None (occurrence: None)
  Receive Date: 20111208
  Receipt Date: 20111125
  Transmission Date: 20120403
  Serious: Yes (Other)
  Sender: FDA-Public Use
  Company Number: US-BAYER-201033131NA

PATIENT
  Age: 16 Year
  Sex: Female
  Weight: 87.528 kg

DRUGS (11)
  1. YAZ [Suspect]
     Indication: CONTRACEPTION
     Dosage: UNK
     Dates: start: 20060801, end: 20070101
  2. PRILOSEC [Concomitant]
     Indication: GASTROOESOPHAGEAL REFLUX DISEASE
     Dosage: UNK
     Dates: start: 20051201
  3. PROCHLORPERAZINE [Concomitant]
     Indication: VOMITING
  4. YASMIN [Suspect]
     Indication: PRODUCT USED FOR UNKNOWN INDICATION
     Dosage: UNK UNK, QD
     Route: 048
     Dates: start: 20070201, end: 20070801
  5. PROCHLORPERAZINE [Concomitant]
     Indication: NAUSEA
     Dosage: UNK
     Dates: start: 20051208, end: 20060108
  6. FLUOXETINE [Concomitant]
     Indication: BIPOLAR DISORDER
     Dosage: UNK
     Dates: start: 20050401, end: 20091201
  7. ESTROSTEP FE [Concomitant]
     Indication: MENSTRUATION IRREGULAR
  8. ESTROSTEP FE [Concomitant]
     Indication: CONTRACEPTION
     Dosage: UNK
     Dates: start: 20051213, end: 20060110
  9. LORATADINE [Concomitant]
     Indication: MULTIPLE ALLERGIES
     Dosage: UNK
     Dates: start: 20050401, end: 20060701
  10. NASONEX [Concomitant]
     Indication: MULTIPLE ALLERGIES
     Dosage: UNK
     Dates: start: 20051213, end: 20051230
  11. FLUOXETINE [Concomitant]
     Indication: DEPRESSION

REACTIONS (10)
  - DEPRESSION [None]
  - ANXIETY [None]
  - CONSTIPATION [None]
  - CHOLECYSTECTOMY [None]
  - SCAR [None]
  - DYSPEPSIA [None]
  - BILIARY DYSKINESIA [None]
  - ABDOMINAL DISTENSION [None]
  - FLATULENCE [None]
  - DIARRHOEA [None]
